FAERS Safety Report 21951036 (Version 1)
Quarter: 2023Q1

REPORT INFORMATION
  Report Type: Spontaneous
  Country: US (occurrence: US)
  Receive Date: 20230203
  Receipt Date: 20230203
  Transmission Date: 20230418
  Serious: Yes (Death)
  Sender: FDA-Public Use
  Company Number: US-BAYER-2023A011191

PATIENT
  Sex: Male

DRUGS (2)
  1. STIVARGA [Suspect]
     Active Substance: REGORAFENIB
     Indication: Renal cancer
     Dosage: 160 MG
  2. STIVARGA [Suspect]
     Active Substance: REGORAFENIB
     Indication: Renal cancer
     Dosage: DOSE REDUCED

REACTIONS (2)
  - Death [Fatal]
  - Cardiac disorder [None]
